FAERS Safety Report 7326155-7 (Version None)
Quarter: 2011Q1

REPORT INFORMATION
  Report Type: 
  Country: None (occurrence: None)
  Receive Date: 20110302
  Receipt Date: 20110131
  Transmission Date: 20110831
  Serious: Yes (Other)
  Sender: FDA-Public Use
  Company Number: JP-ROCHE-762767

PATIENT

DRUGS (1)
  1. OSELTAMIVIR [Suspect]
     Dates: start: 20091016, end: 20091020

REACTIONS (2)
  - STILLBIRTH [None]
  - DRUG EXPOSURE DURING PREGNANCY [None]
